FAERS Safety Report 7935335 (Version 2)
Quarter: 2012Q4

REPORT INFORMATION
  Report Type: 
  Country: US (occurrence: US)
  Receive Date: 20110509
  Receipt Date: 20121105
  Transmission Date: 20130627
  Serious: Yes (Other)
  Sender: FDA-Public Use
  Company Number: US-ROCHE-698065

PATIENT
  Sex: Male
  Weight: 59 kg

DRUGS (1)
  1. ACCUTANE [Suspect]
     Indication: ACNE
     Route: 048
     Dates: start: 20020710, end: 20030115

REACTIONS (3)
  - Inflammatory bowel disease [Unknown]
  - Colitis ulcerative [Recovering/Resolving]
  - Anxiety [Unknown]
